FAERS Safety Report 14978672 (Version 6)
Quarter: 2018Q4

REPORT INFORMATION
  Report Type: Spontaneous
  Country: FR (occurrence: FR)
  Receive Date: 20180606
  Receipt Date: 20181116
  Transmission Date: 20190204
  Serious: Yes (Death, Life-Threatening, Hospitalization)
  Sender: FDA-Public Use
  Company Number: FR-CELGENEUS-FRA-2016103584

PATIENT
  Age: 81 Year
  Sex: Male
  Weight: 96 kg

DRUGS (17)
  1. ROCEPHINE [Concomitant]
     Active Substance: CEFTRIAXONE SODIUM
     Indication: PYREXIA
     Dosage: 2 GRAM
     Route: 048
     Dates: start: 20160825
  2. URAPIDIL [Concomitant]
     Active Substance: URAPIDIL
     Indication: HYPERTENSION
     Dosage: 30 MILLIGRAM
     Route: 048
     Dates: start: 2001
  3. BISOPROLOL [Concomitant]
     Active Substance: BISOPROLOL
     Indication: HYPERTENSION
     Dosage: .625 MILLIGRAM
     Route: 048
     Dates: start: 2001
  4. LASILIX [Concomitant]
     Active Substance: FUROSEMIDE
     Indication: RENAL FAILURE
     Dosage: 40 MICROGRAM
     Route: 048
     Dates: start: 20160907
  5. CALCIPARINE [Concomitant]
     Active Substance: HEPARIN CALCIUM
     Indication: THROMBOSIS PROPHYLAXIS
     Dosage: .1 MILLILITER
     Route: 058
     Dates: start: 2016
  6. DEXAMETHASONE. [Suspect]
     Active Substance: DEXAMETHASONE
     Indication: PLASMA CELL MYELOMA
     Route: 041
     Dates: start: 20160822, end: 20161010
  7. DARATUMUMAB [Concomitant]
     Active Substance: DARATUMUMAB
     Indication: PLASMA CELL MYELOMA
     Dosage: 1550 MG
     Route: 041
     Dates: start: 20160822, end: 20161010
  8. EPOETIN ALFA [Concomitant]
     Active Substance: ERYTHROPOIETIN
     Indication: ANAEMIA
     Dosage: 4285.7143 IU (INTERNATIONAL UNIT)
     Route: 058
  9. CLODRONATE DISODIUM [Concomitant]
     Active Substance: CLODRONATE DISODIUM
     Indication: PROPHYLAXIS
     Dosage: 520 MILLIGRAM
     Route: 065
     Dates: start: 20160822
  10. TRIFLUCAN [Concomitant]
     Active Substance: FLUCONAZOLE
     Indication: CANDIDA INFECTION
     Route: 048
     Dates: start: 20160930
  11. LERCANIDIPINE HYDROCHLORIDE [Concomitant]
     Active Substance: LERCANIDIPINE HYDROCHLORIDE
     Indication: HYPERTENSION
     Dosage: 5 MILLIGRAM
     Route: 048
     Dates: start: 2001
  12. AMIODARONE [Concomitant]
     Active Substance: AMIODARONE
     Indication: ISCHAEMIC CARDIOMYOPATHY
     Dosage: 200 MILLIGRAM
     Route: 048
     Dates: start: 2000
  13. FUROSEMIDE. [Concomitant]
     Active Substance: FUROSEMIDE
     Indication: HYPERTENSION
     Dosage: 20 MILLIGRAM
     Route: 065
     Dates: start: 2001
  14. CEFTRIAXONE SODIUM. [Concomitant]
     Active Substance: CEFTRIAXONE SODIUM
     Indication: PRODUCT USED FOR UNKNOWN INDICATION
     Route: 065
     Dates: end: 20160901
  15. CALCIDOSE [Concomitant]
     Active Substance: CALCIUM CARBONATE
     Indication: HYPOCALCAEMIA
     Dosage: 500 MILLIGRAM
     Route: 065
     Dates: start: 20160915
  16. REVLIMID [Suspect]
     Active Substance: LENALIDOMIDE
     Indication: PLASMA CELL MYELOMA
     Route: 048
     Dates: start: 20160822, end: 20161005
  17. HUMALOG [Concomitant]
     Active Substance: INSULIN LISPRO
     Indication: TYPE 1 DIABETES MELLITUS
     Dosage: 3 MILLILITER
     Route: 058
     Dates: start: 2006

REACTIONS (4)
  - Abscess limb [Recovered/Resolved]
  - Pneumonia [Not Recovered/Not Resolved]
  - Hyperkalaemia [Not Recovered/Not Resolved]
  - Haemorrhagic stroke [Fatal]

NARRATIVE: CASE EVENT DATE: 20160921
